FAERS Safety Report 7835114-7 (Version None)
Quarter: 2011Q4

REPORT INFORMATION
  Report Type: 
  Country: None (occurrence: None)
  Receive Date: 20111024
  Receipt Date: 20111011
  Transmission Date: 20120403
  Serious: Yes (Other)
  Sender: FDA-Public Use
  Company Number: CA-ELI_LILLY_AND_COMPANY-CA201110002441

PATIENT
  Sex: Male

DRUGS (5)
  1. RISPERIDONE [Concomitant]
  2. ZYPREXA [Suspect]
     Indication: SCHIZOPHRENIA
     Dosage: 1 DF, UNK
     Dates: start: 19961101
  3. ZYPREXA [Suspect]
     Dosage: 2.5 MG, QD
  4. ZYPREXA [Suspect]
     Dosage: 1 DF, UNK
     Dates: end: 20030601
  5. ZYPREXA [Suspect]
     Dosage: 3.75 MG, UNK

REACTIONS (5)
  - SYNCOPE [None]
  - TINEA PEDIS [None]
  - DIABETES MELLITUS [None]
  - HYPERGLYCAEMIA [None]
  - HYPERLIPIDAEMIA [None]
